FAERS Safety Report 16214417 (Version 2)
Quarter: 2019Q2

REPORT INFORMATION
  Report Type: Spontaneous
  Country: JP (occurrence: JP)
  Receive Date: 20190418
  Receipt Date: 20190430
  Transmission Date: 20190711
  Serious: Yes (Other)
  Sender: FDA-Public Use
  Company Number: JP-PFIZER INC-2019097571

PATIENT
  Age: 68 Year
  Sex: Female

DRUGS (4)
  1. AZULFIDINE EN-TABS [Suspect]
     Active Substance: SULFASALAZINE
     Indication: RHEUMATOID ARTHRITIS
     Dosage: 250 MG, 1X/DAY
  2. REBAMIPIDE [Suspect]
     Active Substance: REBAMIPIDE
     Dosage: UNK
     Dates: end: 20180712
  3. AZULFIDINE EN-TABS [Suspect]
     Active Substance: SULFASALAZINE
     Dosage: 500 MG, DAILY
     Dates: start: 20180706, end: 20180712
  4. CELECOX [Suspect]
     Active Substance: CELECOXIB
     Indication: RHEUMATOID ARTHRITIS
     Dosage: 200 MG, DAILY
     Route: 048
     Dates: end: 20180712

REACTIONS (3)
  - Conjunctival hyperaemia [Recovered/Resolved]
  - Drug eruption [Recovered/Resolved]
  - Oral mucosal erythema [Recovered/Resolved]

NARRATIVE: CASE EVENT DATE: 20180712
